FAERS Safety Report 7755234-5 (Version None)
Quarter: 2011Q3

REPORT INFORMATION
  Report Type: 
  Country: None (occurrence: None)
  Receive Date: 20110914
  Receipt Date: 20110831
  Transmission Date: 20111222
  Serious: Yes (Death)
  Sender: FDA-Public Use
  Company Number: MPS1-1000563

PATIENT
  Age: 11 Year
  Sex: Female

DRUGS (1)
  1. ALDURAZYME [Suspect]
     Indication: MUCOPOLYSACCHARIDOSIS
     Dosage: INTRAVENOUS
     Route: 042
     Dates: start: 20041201, end: 20100501

REACTIONS (1)
  - RESPIRATORY DISORDER [None]
